FAERS Safety Report 19432712 (Version 2)
Quarter: 2021Q3

REPORT INFORMATION
  Report Type: Report from Study
  Country: CA (occurrence: CA)
  Receive Date: 20210618
  Receipt Date: 20210817
  Transmission Date: 20211014
  Serious: Yes (Hospitalization, Other)
  Sender: FDA-Public Use
  Company Number: CA-GILEAD-2021-0532457

PATIENT
  Age: 46 Year
  Sex: Male

DRUGS (1)
  1. AZTREONAM LYSINE [Suspect]
     Active Substance: AZTREONAM LYSINE
     Indication: CYSTIC FIBROSIS
     Dosage: UNK
     Route: 055
     Dates: start: 202105, end: 2021

REACTIONS (6)
  - Off label use [Unknown]
  - Drug ineffective [Not Recovered/Not Resolved]
  - Asthenia [Unknown]
  - Swelling [Unknown]
  - Loss of consciousness [Unknown]
  - Hypotension [Unknown]

NARRATIVE: CASE EVENT DATE: 2021
